FAERS Safety Report 9338066 (Version 1)
Quarter: 2013Q2

REPORT INFORMATION
  Report Type: Report from Study
  Country: US (occurrence: US)
  Receive Date: 20130610
  Receipt Date: 20130610
  Transmission Date: 20140414
  Serious: Yes (Other)
  Sender: FDA-Public Use
  Company Number: US-ROCHE-1233844

PATIENT
  Age: 49 Year
  Sex: Male
  Weight: 86.26 kg

DRUGS (1)
  1. AVASTIN [Suspect]
     Indication: METASTATIC RENAL CELL CARCINOMA
     Route: 042
     Dates: start: 20130101, end: 20130529

REACTIONS (2)
  - Gastrointestinal neoplasm [Not Recovered/Not Resolved]
  - Abdominal cavity drainage [Recovered/Resolved]
